FAERS Safety Report 9859860 (Version 2)
Quarter: 2014Q1

REPORT INFORMATION
  Report Type: Spontaneous
  Country: DE (occurrence: DE)
  Receive Date: 20140131
  Receipt Date: 20140318
  Transmission Date: 20141002
  Serious: Yes (Other)
  Sender: FDA-Public Use
  Company Number: DE-UCBSA-110481

PATIENT
  Sex: Female

DRUGS (3)
  1. NEUPRO [Suspect]
     Indication: RESTLESS LEGS SYNDROME
     Dosage: PER DAY
  2. EXFORGE [Concomitant]
     Dosage: 5/160, UNKNOWN DOSE
  3. LEVODOPA [Concomitant]
     Dosage: 200 MG STRENGTH, (100 MG - 0 MG - 100 MG RET.)

REACTIONS (1)
  - Glaucoma [Unknown]
